FAERS Safety Report 22876788 (Version 5)
Quarter: 2025Q1

REPORT INFORMATION
  Report Type: Spontaneous
  Country: US (occurrence: US)
  Receive Date: 20230829
  Receipt Date: 20250109
  Transmission Date: 20250408
  Serious: Yes (Other)
  Sender: PFIZER
  Company Number: US-PFIZER INC-PV202300000509

PATIENT
  Age: 68 Year
  Sex: Female
  Weight: 82.54 kg

DRUGS (5)
  1. IBRANCE [Suspect]
     Active Substance: PALBOCICLIB
     Indication: Breast cancer female
     Route: 048
  2. IBRANCE [Suspect]
     Active Substance: PALBOCICLIB
     Dosage: 125 MG, DAILY
     Route: 048
  3. IBRANCE [Suspect]
     Active Substance: PALBOCICLIB
     Dates: start: 2017
  4. IBRANCE [Suspect]
     Active Substance: PALBOCICLIB
     Route: 048
  5. LETROZOLE [Concomitant]
     Active Substance: LETROZOLE
     Dates: start: 2017

REACTIONS (2)
  - Neutrophil count decreased [Unknown]
  - Laboratory test abnormal [Unknown]
